FAERS Safety Report 5961073-8 (Version None)
Quarter: 2008Q4

REPORT INFORMATION
  Report Type: 
  Country: None (occurrence: None)
  Receive Date: 20081121
  Receipt Date: 20081113
  Transmission Date: 20090506
  Serious: Yes (Life-Threatening, Hospitalization)
  Sender: FDA-Public Use
  Company Number: US-ABBOTT-08P-163-0473108-07

PATIENT
  Sex: Female
  Weight: 46.7 kg

DRUGS (14)
  1. HUMIRA [Suspect]
     Indication: RHEUMATOID ARTHRITIS
     Route: 058
     Dates: start: 20010829
  2. ACETYLSALICYLIC ACID SRT [Concomitant]
     Indication: CARDIOVASCULAR EVENT PROPHYLAXIS
     Route: 048
     Dates: start: 20080701
  3. PANTOPRAZOLE SODIUM [Concomitant]
     Indication: GASTROOESOPHAGEAL REFLUX DISEASE
     Route: 048
     Dates: start: 20080701
  4. LEVOTHYROXINE SODIUM [Concomitant]
     Indication: HYPOTHYROIDISM
     Route: 048
     Dates: start: 20080705
  5. SACCHAROMYCES BOULARDII [Concomitant]
     Indication: PROPHYLAXIS AGAINST GASTROINTESTINAL ULCER
     Route: 048
     Dates: start: 20080731
  6. XENODUM [Concomitant]
     Indication: SKIN DISORDER
     Dosage: 1 APPLICATION
     Route: 061
     Dates: start: 20080730
  7. CEFTRIAXONE [Concomitant]
     Indication: URINARY TRACT INFECTION
     Route: 042
     Dates: start: 20080804
  8. ENALAPRIL MALEATE [Concomitant]
     Indication: DEMENTIA
     Route: 048
     Dates: start: 20080729
  9. ENALAPRIL MALEATE [Concomitant]
     Indication: DELIRIUM
  10. CALCIUM CARBONATE [Concomitant]
     Indication: OSTEOPOROSIS
     Route: 048
     Dates: start: 20080701
  11. PROPACET 100 [Concomitant]
     Indication: BACK PAIN
     Dosage: DARVOCET N-65
     Route: 048
     Dates: start: 20080701
  12. RALOXIFENE HCL [Concomitant]
     Indication: OSTEOPOROSIS PROPHYLAXIS
     Route: 048
     Dates: start: 20050617
  13. FOLIC ACID [Concomitant]
     Indication: RHEUMATOID ARTHRITIS
     Route: 048
     Dates: start: 20050617
  14. METHOTREXATE [Concomitant]
     Indication: RHEUMATOID ARTHRITIS
     Route: 048
     Dates: start: 20080701, end: 20080809

REACTIONS (3)
  - CANDIDIASIS [None]
  - ENTEROCOCCAL INFECTION [None]
  - URINARY TRACT INFECTION [None]
